FAERS Safety Report 23279116 (Version 1)
Quarter: 2023Q4

REPORT INFORMATION
  Report Type: Spontaneous
  Country: SG (occurrence: SG)
  Receive Date: 20231209
  Receipt Date: 20231209
  Transmission Date: 20240110
  Serious: Yes (Other)
  Sender: FDA-Public Use
  Company Number: SG-OPELLA-2023OHG017649

PATIENT
  Age: 42 Year

DRUGS (3)
  1. FEXOFENADINE [Suspect]
     Active Substance: FEXOFENADINE HYDROCHLORIDE
  2. IBUPROFEN [Suspect]
     Active Substance: IBUPROFEN
  3. CAFFEINE [Suspect]
     Active Substance: CAFFEINE

REACTIONS (1)
  - Angioedema [Unknown]

NARRATIVE: CASE EVENT DATE: 20231024
